FAERS Safety Report 17551246 (Version 1)
Quarter: 2020Q1

REPORT INFORMATION
  Report Type: Spontaneous
  Country: US (occurrence: US)
  Receive Date: 20200317
  Receipt Date: 20200317
  Transmission Date: 20200409
  Serious: No
  Sender: FDA-Public Use
  Company Number: US-TEVA-2020-US-1200408

PATIENT

DRUGS (1)
  1. NIACIN ER [Suspect]
     Active Substance: NIACIN
     Route: 065

REACTIONS (5)
  - Nausea [Unknown]
  - Liver function test increased [Recovered/Resolved]
  - Vomiting [Unknown]
  - Fatigue [Recovered/Resolved]
  - Drug interaction [Unknown]
